FAERS Safety Report 21977869 (Version 1)
Quarter: 2023Q1

REPORT INFORMATION
  Report Type: Spontaneous
  Country: US (occurrence: None)
  Receive Date: 20230209
  Receipt Date: 20230209
  Transmission Date: 20230418
  Serious: Yes (Disabling)
  Sender: FDA-Public Use
  Company Number: None

PATIENT
  Age: 56 Year
  Sex: Female
  Weight: 56.25 kg

DRUGS (1)
  1. DEPO-MEDROL [Suspect]
     Active Substance: METHYLPREDNISOLONE ACETATE
     Indication: Lumbar radiculopathy
     Dosage: OTHER STRENGTH : 10CC;?OTHER QUANTITY : 10 INJECTION(S);?OTHER FREQUENCY : EVERY 3 MONTHS;?
     Route: 008
     Dates: start: 20120912, end: 20121213

REACTIONS (2)
  - Arachnoiditis [None]
  - Product contamination [None]

NARRATIVE: CASE EVENT DATE: 20120927
